FAERS Safety Report 6766350-9 (Version None)
Quarter: 2010Q2

REPORT INFORMATION
  Report Type: 
  Country: None (occurrence: None)
  Receive Date: 20100611
  Receipt Date: 20100521
  Transmission Date: 20101027
  Serious: Yes (Other)
  Sender: FDA-Public Use
  Company Number: PHEH2007US04858

PATIENT
  Sex: Female

DRUGS (10)
  1. AREDIA [Suspect]
     Indication: BONE DENSITY DECREASED
     Dosage: UNK, QMO
  2. ZOMETA [Suspect]
     Indication: RESORPTION BONE INCREASED
     Dosage: UNK, QMO
  3. CHEMOTHERAPEUTICS NOS [Concomitant]
  4. LEVOXYL [Concomitant]
  5. DILTIAZEM [Concomitant]
  6. TRIMETHOPRIM [Concomitant]
  7. DILAUDID [Concomitant]
     Dosage: 1 TO 2 TABLETS EVERY 4-6 HRS.
     Route: 048
     Dates: start: 20060516
  8. MS CONTIN [Concomitant]
     Dosage: 1 DF, BID
     Route: 048
     Dates: start: 20060807
  9. FOSAMAX [Concomitant]
     Dosage: 1 EVERY 7 DAYS
     Dates: start: 20051121
  10. HEPARIN [Concomitant]
     Route: 042

REACTIONS (35)
  - ANXIETY [None]
  - BACK PAIN [None]
  - BONE DISORDER [None]
  - CAROTID ARTERY DISEASE [None]
  - CHOLELITHIASIS [None]
  - DEBRIDEMENT [None]
  - DYSPNOEA EXERTIONAL [None]
  - ELECTROCARDIOGRAM ABNORMAL [None]
  - FATIGUE [None]
  - FUNGAL INFECTION [None]
  - HAEMANGIOMA [None]
  - HAEMATOCRIT DECREASED [None]
  - HAEMOGLOBIN DECREASED [None]
  - HEART RATE INCREASED [None]
  - HEPATIC CYST [None]
  - HEPATIC LESION [None]
  - HIATUS HERNIA [None]
  - INTERVERTEBRAL DISC DEGENERATION [None]
  - LYMPHADENOPATHY [None]
  - MARROW HYPERPLASIA [None]
  - METASTASES TO BONE [None]
  - METASTASES TO SPINE [None]
  - MONOCYTE COUNT INCREASED [None]
  - MUSCULOSKELETAL CHEST PAIN [None]
  - NAUSEA [None]
  - OSTEOMYELITIS [None]
  - OSTEONECROSIS OF JAW [None]
  - PAIN [None]
  - PERIODONTITIS [None]
  - PRIMARY SEQUESTRUM [None]
  - SPLENIC CYST [None]
  - SWELLING [None]
  - TENDERNESS [None]
  - TOOTH EXTRACTION [None]
  - VOMITING [None]
